FAERS Safety Report 8151270-8 (Version None)
Quarter: 2012Q1

REPORT INFORMATION
  Report Type: 
  Country: None (occurrence: None)
  Receive Date: 20120220
  Receipt Date: 20120214
  Transmission Date: 20120608
  Serious: No
  Sender: FDA-Public Use
  Company Number: US-BAYER-2012-015198

PATIENT
  Age: 65 Year
  Sex: Male

DRUGS (4)
  1. STAXYN [Suspect]
     Indication: ERECTILE DYSFUNCTION
     Dosage: 10 MG, UNK
     Route: 048
     Dates: end: 20120115
  2. LISINOPRIL [Concomitant]
  3. ARICEPT [Concomitant]
  4. NEUMEGA [Concomitant]

REACTIONS (1)
  - ERECTILE DYSFUNCTION [None]
